FAERS Safety Report 17820210 (Version 2)
Quarter: 2020Q3

REPORT INFORMATION
  Report Type: Report from Study
  Country: None (occurrence: US)
  Receive Date: 20200525
  Receipt Date: 20200803
  Transmission Date: 20201102
  Serious: Yes (Hospitalization)
  Sender: FDA-Public Use
  Company Number: US-ABBVIE-20K-163-3414749-00

PATIENT
  Sex: Male
  Weight: 82.63 kg

DRUGS (10)
  1. PREDNISONE. [Suspect]
     Active Substance: PREDNISONE
     Dosage: FOR WEEK
     Route: 065
     Dates: start: 2020, end: 2020
  2. HUMIRA [Suspect]
     Active Substance: ADALIMUMAB
     Dosage: DOSE INCREASED
     Route: 058
  3. HUMIRA [Suspect]
     Active Substance: ADALIMUMAB
     Indication: PRODUCT USED FOR UNKNOWN INDICATION
     Route: 058
  4. PREDNISONE. [Suspect]
     Active Substance: PREDNISONE
     Dosage: FOR WEEK
     Route: 065
     Dates: start: 2020, end: 2020
  5. PREDNISONE. [Suspect]
     Active Substance: PREDNISONE
     Dosage: FOR WEEK
     Route: 065
     Dates: start: 2020, end: 2020
  6. METFORMIN [Concomitant]
     Active Substance: METFORMIN HYDROCHLORIDE
     Indication: PRODUCT USED FOR UNKNOWN INDICATION
  7. PREDNISONE. [Suspect]
     Active Substance: PREDNISONE
     Indication: PRODUCT USED FOR UNKNOWN INDICATION
     Route: 065
     Dates: start: 2020, end: 2020
  8. PREDNISONE. [Suspect]
     Active Substance: PREDNISONE
     Dosage: FOR WEEK
     Route: 065
     Dates: start: 2020, end: 2020
  9. PREDNISONE. [Suspect]
     Active Substance: PREDNISONE
     Dosage: FOR WEEK
     Route: 065
     Dates: start: 2020, end: 2020
  10. PREDNISONE. [Suspect]
     Active Substance: PREDNISONE
     Dosage: FOR WEEK
     Route: 065
     Dates: start: 2020

REACTIONS (2)
  - Blood glucose abnormal [Unknown]
  - Intestinal obstruction [Unknown]
